FAERS Safety Report 6171066-6 (Version None)
Quarter: 2009Q2

REPORT INFORMATION
  Report Type: 
  Country: None (occurrence: None)
  Receive Date: 20090429
  Receipt Date: 20090420
  Transmission Date: 20091009
  Serious: Yes (Hospitalization)
  Sender: FDA-Public Use
  Company Number: DE-WYE-H08990709

PATIENT
  Sex: Female
  Weight: 60 kg

DRUGS (3)
  1. PANTOZOL [Suspect]
     Dosage: 20 MG, UNSPECIFIED FREQUENCY
     Dates: start: 20090219, end: 20090323
  2. BELOC ZOK [Concomitant]
     Dosage: UNKNOWN
  3. MARCUMAR [Concomitant]
     Dosage: UNKNOWN
     Dates: start: 20090319, end: 20090319

REACTIONS (2)
  - HAEMANGIOMA [None]
  - HEMIANOPIA [None]
